FAERS Safety Report 25133497 (Version 6)
Quarter: 2025Q4

REPORT INFORMATION
  Report Type: Report from Study
  Country: CA (occurrence: CA)
  Receive Date: 20250328
  Receipt Date: 20251230
  Transmission Date: 20260118
  Serious: Yes (Other)
  Sender: CELLTRION
  Company Number: CA-CELLTRION INC.-2025CA008929

PATIENT

DRUGS (3)
  1. USTEKINUMAB [Suspect]
     Active Substance: USTEKINUMAB
     Indication: Crohn^s disease
     Dosage: 250 MG (130/26 MG/ML)
     Route: 042
     Dates: start: 20250227
  2. STEQEYMA [Suspect]
     Active Substance: USTEKINUMAB-STBA
     Indication: Crohn^s disease
     Dosage: 90 MG EVERY 8 WEEKS
     Route: 058
     Dates: start: 20250703
  3. STEQEYMA [Suspect]
     Active Substance: USTEKINUMAB-STBA
     Dosage: 90 MG EVERY 8 WEEKS
     Route: 058
     Dates: start: 20250314, end: 20251127

REACTIONS (4)
  - Crohn^s disease [Recovered/Resolved]
  - Cough [Recovered/Resolved]
  - Pruritus [Unknown]
  - Pruritus [Unknown]

NARRATIVE: CASE EVENT DATE: 20250227
